FAERS Safety Report 5955646-6 (Version None)
Quarter: 2008Q4

REPORT INFORMATION
  Report Type: 
  Country: None (occurrence: None)
  Receive Date: 20081113
  Receipt Date: 20081031
  Transmission Date: 20090506
  Serious: Yes (Death, Other)
  Sender: FDA-Public Use
  Company Number: 230003L08USA

PATIENT
  Age: 53 Year
  Sex: Female

DRUGS (1)
  1. INTERFERON BETA(INTERFERON BETA) [Suspect]
     Indication: MULTIPLE SCLEROSIS
     Dosage: 3 IN 1 WEEKS

REACTIONS (9)
  - BREAST CANCER STAGE III [None]
  - DERMATOMYOSITIS [None]
  - ENDOCARDITIS [None]
  - HYPOAESTHESIA [None]
  - LYMPHADENOPATHY [None]
  - MALIGNANT NEOPLASM PROGRESSION [None]
  - METASTASES TO LIVER [None]
  - PARAESTHESIA [None]
  - SUPERIOR VENA CAVAL OCCLUSION [None]
